FAERS Safety Report 4730361-5 (Version None)
Quarter: 2005Q3

REPORT INFORMATION
  Report Type: 
  Country: None (occurrence: None)
  Receive Date: 20050801
  Receipt Date: 20050705
  Transmission Date: 20060218
  Serious: Yes (Hospitalization)
  Sender: FDA-Public Use
  Company Number: JP-MERCK-0507USA01291

PATIENT
  Age: 81 Year
  Sex: Female

DRUGS (4)
  1. FOSAMAX [Suspect]
     Indication: OSTEOPOROSIS
     Route: 048
     Dates: start: 20050301, end: 20050401
  2. FOSAMAX [Suspect]
     Route: 048
     Dates: start: 20050625, end: 20050701
  3. FOSAMAX [Suspect]
     Route: 048
     Dates: start: 20050625, end: 20050701
  4. WARFARIN [Suspect]
     Indication: CEREBRAL INFARCTION
     Route: 048
     Dates: start: 20050405

REACTIONS (3)
  - PURPURA [None]
  - RASH [None]
  - SPINAL COMPRESSION FRACTURE [None]
